FAERS Safety Report 4447720-0 (Version None)
Quarter: 2004Q3

REPORT INFORMATION
  Report Type: 
  Country: None (occurrence: None)
  Receive Date: 20040802
  Receipt Date: 20040518
  Transmission Date: 20050211
  Serious: No
  Sender: FDA-Public Use
  Company Number: 2004-118235-NL

PATIENT
  Age: 48 Year
  Sex: Female

DRUGS (5)
  1. NUVARING [Suspect]
     Indication: MENSTRUAL DISORDER
     Dosage: DF DAILY VAGINAL
     Route: 067
     Dates: start: 20040503
  2. TOPAMAX [Concomitant]
  3. INDERAL LA [Concomitant]
  4. CARBOMAZEPINE [Concomitant]
  5. IMITREX ^CERENEX^ [Concomitant]

REACTIONS (2)
  - METRORRHAGIA [None]
  - VAGINAL CONTRACEPTIVE DEVICE EXPELLED [None]
